FAERS Safety Report 14681674 (Version 1)
Quarter: 2018Q1

REPORT INFORMATION
  Report Type: Report from Study
  Country: US (occurrence: US)
  Receive Date: 20180326
  Receipt Date: 20180326
  Transmission Date: 20180509
  Serious: Yes (Death, Other)
  Sender: FDA-Public Use
  Company Number: US-TEVA-2018-US-873925

PATIENT

DRUGS (5)
  1. DOXORUBICIN [Suspect]
     Active Substance: DOXORUBICIN
     Dosage: DOSE: 50 MG/M2
     Route: 065
  2. PREDNISONE. [Suspect]
     Active Substance: PREDNISONE
     Route: 065
  3. CYCLOPHOSPHAMIDE. [Suspect]
     Active Substance: CYCLOPHOSPHAMIDE
     Dosage: DOSE: 750 MG/M2
     Route: 065
  4. VINCRISTINE [Suspect]
     Active Substance: VINCRISTINE
     Dosage: DOSE: 1?4 MG/M2
     Route: 065
  5. RITUXIMAB. [Suspect]
     Active Substance: RITUXIMAB
     Route: 065

REACTIONS (12)
  - Sarcoma [Fatal]
  - Renal cell carcinoma [Fatal]
  - Hepatic cirrhosis [Fatal]
  - Leukopenia [Unknown]
  - Thrombocytopenia [Unknown]
  - Death [Fatal]
  - Neoplasm malignant [Fatal]
  - Colorectal cancer [Fatal]
  - Cardiac arrest [Fatal]
  - Myeloid leukaemia [Fatal]
  - Neutropenia [Unknown]
  - Febrile neutropenia [Unknown]
